FAERS Safety Report 10039602 (Version 1)
Quarter: 2014Q1

REPORT INFORMATION
  Report Type: Spontaneous
  Country: US (occurrence: US)
  Receive Date: 20140326
  Receipt Date: 20140326
  Transmission Date: 20141002
  Serious: Yes (Other)
  Sender: FDA-Public Use
  Company Number: US-PFIZER INC-2014086209

PATIENT
  Age: 67 Year
  Sex: Female
  Weight: 90.7 kg

DRUGS (7)
  1. CELEBREX [Suspect]
     Indication: ARTHRITIS
     Dosage: 200 MG, UNK(ONCE OR TWO TIMES A DAY )
  2. DETROL LA [Suspect]
     Indication: INCONTINENCE
     Dosage: 8 MG, DAILY
  3. CITALOPRAM [Concomitant]
     Indication: DEPRESSION
     Dosage: 20 MG, DAILY
  4. CALCIUM [Concomitant]
     Dosage: UNK
  5. VITAMIN D [Concomitant]
     Dosage: UNK
  6. FISH OIL [Concomitant]
     Dosage: UNK
  7. MULTIVITAMINS [Concomitant]

REACTIONS (1)
  - Arthropathy [Unknown]
